FAERS Safety Report 7926894-0 (Version None)
Quarter: 2011Q4

REPORT INFORMATION
  Report Type: 
  Country: None (occurrence: None)
  Receive Date: 20111118
  Receipt Date: 20111115
  Transmission Date: 20120403
  Serious: Yes (Other)
  Sender: FDA-Public Use
  Company Number: JP-PFIZER INC-2011242726

PATIENT
  Age: 88 Year
  Sex: Female
  Weight: 38.5 kg

DRUGS (12)
  1. ARICEPT [Concomitant]
     Dosage: 5 MG, 1X/DAY
     Dates: start: 20110909, end: 20110930
  2. LYRICA [Suspect]
     Indication: INTERCOSTAL NEURALGIA
     Dosage: 75 MG, SINGLE
     Route: 048
     Dates: start: 20110909, end: 20110909
  3. SIGMART [Concomitant]
     Indication: ANGINA PECTORIS
     Dosage: 5 MG, 1X/DAY
     Route: 048
     Dates: start: 20090510
  4. EBASTEL OD [Concomitant]
     Indication: ECZEMA
     Dosage: 10 MG, 1X/DAY
     Route: 048
     Dates: start: 20090510
  5. SELBEX [Concomitant]
     Indication: GASTRITIS
     Dosage: 0.5 G, 3X/DAY
     Route: 048
     Dates: start: 20090510
  6. LORCAM [Concomitant]
     Indication: BACK PAIN
     Dosage: 4 MG, 2X/DAY
     Route: 048
     Dates: start: 20090510
  7. ISOSORBIDE DINITRATE [Concomitant]
     Indication: ANGINA PECTORIS
     Dosage: 40 MG, 1X/DAY
     Dates: start: 20090510
  8. EDIROL [Concomitant]
     Indication: OSTEOPOROSIS
     Dosage: 0.75 UG, 1X/DAY
     Route: 048
     Dates: start: 20090510, end: 20110908
  9. VIVIANT [Concomitant]
     Indication: OSTEOPOROSIS
     Dosage: 20 MG, 1X/DAY
     Route: 048
     Dates: start: 20090510, end: 20110908
  10. ALFAROL [Concomitant]
     Indication: OSTEOPOROSIS
     Dosage: 0.5 UG, 1X/DAY
     Route: 048
     Dates: start: 20110909
  11. ARICEPT [Concomitant]
     Indication: DEMENTIA ALZHEIMER'S TYPE
     Dosage: 3 MG, 1X/DAY
     Dates: start: 20110818, end: 20110908
  12. EVISTA [Concomitant]
     Indication: OSTEOPOROSIS
     Dosage: 60 MG, 1X/DAY
     Route: 048
     Dates: start: 20110909, end: 20110930

REACTIONS (10)
  - UPPER RESPIRATORY TRACT INFECTION [None]
  - HYPERHIDROSIS [None]
  - DIZZINESS [None]
  - PYREXIA [None]
  - LOSS OF CONSCIOUSNESS [None]
  - CONVULSION [None]
  - BLOOD PRESSURE INCREASED [None]
  - NAUSEA [None]
  - HEADACHE [None]
  - THIRST [None]
